FAERS Safety Report 25288365 (Version 1)
Quarter: 2025Q2

REPORT INFORMATION
  Report Type: Spontaneous
  Country: US (occurrence: None)
  Receive Date: 20250508
  Receipt Date: 20250508
  Transmission Date: 20250717
  Serious: Yes (Hospitalization)
  Sender: FDA-CTU
  Company Number: None

PATIENT
  Age: 66 Year
  Sex: Female
  Weight: 59.62 kg

DRUGS (9)
  1. TACROLIMUS [Suspect]
     Active Substance: TACROLIMUS
     Indication: Renal transplant
     Dosage: FREQUENCY : TWICE A DAY;?
     Route: 048
  2. MYCOPHENOLIC ACID [Suspect]
     Active Substance: MYCOPHENOLIC ACID
     Dosage: FREQUENCY : TWICE A DAY;?
     Route: 048
  3. TORSEMIDE [Suspect]
     Active Substance: TORSEMIDE
  4. METOLAZONE [Suspect]
     Active Substance: METOLAZONE
  5. potassium chloride micro 10 mEq [Concomitant]
     Dates: start: 20250402, end: 20250429
  6. famotidine 20 mg tablet [Concomitant]
  7. aspirin 81 mg EC tablet [Concomitant]
  8. valganciclovir 450 mg tablet [Concomitant]
  9. sulfamethoxazole/trimethoprim 400-80 mg tablet [Concomitant]

REACTIONS (6)
  - Fluid retention [None]
  - Peripheral swelling [None]
  - Condition aggravated [None]
  - Hypokalaemia [None]
  - Spinal fracture [None]
  - Hypertension [None]

NARRATIVE: CASE EVENT DATE: 20250417
